FAERS Safety Report 12975174 (Version 3)
Quarter: 2016Q4

REPORT INFORMATION
  Report Type: Spontaneous
  Country: JP (occurrence: JP)
  Receive Date: 20161125
  Receipt Date: 20161220
  Transmission Date: 20170207
  Serious: Yes (Other)
  Sender: FDA-Public Use
  Company Number: JP-TAKEDA-2016MPI010075

PATIENT
  Age: 71 Year
  Sex: Male
  Weight: 47 kg

DRUGS (13)
  1. TENOFOVIR DISOPROXIL [Suspect]
     Active Substance: TENOFOVIR DISOPROXIL
     Indication: HEPATITIS B
     Dosage: UNK
     Route: 048
     Dates: start: 20161111
  2. VELCADE [Suspect]
     Active Substance: BORTEZOMIB
     Dosage: 2 MG, QD
     Route: 058
     Dates: start: 20161128
  3. ENDOXAN                            /00021101/ [Concomitant]
     Active Substance: CYCLOPHOSPHAMIDE
     Dosage: 800 MG, QD
     Route: 065
     Dates: start: 20160913
  4. RITUXAN [Suspect]
     Active Substance: RITUXIMAB
     Indication: MANTLE CELL LYMPHOMA
     Dosage: 500 MG, QD
     Route: 065
     Dates: start: 20160820, end: 20161026
  5. NEUTROGIN [Suspect]
     Active Substance: LENOGRASTIM
     Indication: PRODUCT USED FOR UNKNOWN INDICATION
     Dosage: 100 IU, QD
     Route: 065
     Dates: start: 20160905
  6. METHYLPREDNISOLONE SODIUM SUCCINATE. [Concomitant]
     Active Substance: METHYLPREDNISOLONE SODIUM SUCCINATE
     Dosage: 250 MG, QD
     Route: 065
     Dates: start: 20160830
  7. VELCADE [Suspect]
     Active Substance: BORTEZOMIB
     Indication: MANTLE CELL LYMPHOMA
     Dosage: 2 MG, QD
     Route: 058
     Dates: start: 20160820, end: 20161026
  8. PREDNISOLONE. [Concomitant]
     Active Substance: PREDNISOLONE
     Dosage: 80 MG, QD
     Route: 065
     Dates: start: 20160823
  9. ENDOXAN                            /00021101/ [Concomitant]
     Active Substance: CYCLOPHOSPHAMIDE
     Dosage: 900 MG, QD
     Route: 065
     Dates: start: 20160824
  10. SOLU-CORTEF [Concomitant]
     Active Substance: HYDROCORTISONE SODIUM SUCCINATE
     Dosage: 100 MG, QD
     Route: 065
     Dates: start: 20160822
  11. PREDNISOLONE. [Concomitant]
     Active Substance: PREDNISOLONE
     Dosage: 20 MG, QD
     Route: 065
     Dates: start: 20161101
  12. PREDNISOLONE. [Concomitant]
     Active Substance: PREDNISOLONE
     Dosage: 40 MG, QD
     Route: 065
     Dates: start: 20161128
  13. BARACLUDE [Concomitant]
     Active Substance: ENTECAVIR
     Dosage: UNK
     Route: 048
     Dates: start: 20161101, end: 20161106

REACTIONS (2)
  - Rash [Recovered/Resolved]
  - Hepatitis B [Recovered/Resolved]

NARRATIVE: CASE EVENT DATE: 20161026
